FAERS Safety Report 18242449 (Version 2)
Quarter: 2020Q3

REPORT INFORMATION
  Report Type: Report from Study
  Country: US (occurrence: US)
  Receive Date: 20200908
  Receipt Date: 20200924
  Transmission Date: 20201103
  Serious: No
  Sender: FDA-Public Use
  Company Number: US-BAYER-2020-183079

PATIENT
  Sex: Male

DRUGS (2)
  1. BETACONNECT [Suspect]
     Active Substance: DEVICE
     Dosage: UNK
  2. BETASERON [Suspect]
     Active Substance: INTERFERON BETA-1B
     Dosage: UNK

REACTIONS (2)
  - Drug delivery system malfunction [None]
  - Incorrect dose administered by device [None]
